FAERS Safety Report 8150366-4 (Version None)
Quarter: 2012Q1

REPORT INFORMATION
  Report Type: 
  Country: None (occurrence: None)
  Receive Date: 20120220
  Receipt Date: 20120216
  Transmission Date: 20120608
  Serious: Yes (Other)
  Sender: FDA-Public Use
  Company Number: VE-PFIZER INC-2012043376

PATIENT
  Age: 74 Year
  Sex: Female

DRUGS (2)
  1. LIPITOR [Suspect]
     Indication: HYPERCHOLESTEROLAEMIA
     Dosage: 40 MG, ONCE DAILY
     Route: 048
  2. LOSARTAN [Concomitant]
     Indication: HYPERTENSION
     Dosage: 50 MG, ONCE DAILY
     Route: 048

REACTIONS (1)
  - PARKINSON'S DISEASE [None]
